FAERS Safety Report 8620302 (Version 3)
Quarter: 2012Q4

REPORT INFORMATION
  Report Type: Report from Study
  Country: JP (occurrence: JP)
  Receive Date: 20120618
  Receipt Date: 20121005
  Transmission Date: 20130627
  Serious: Yes (Hospitalization)
  Sender: FDA-Public Use
  Company Number: JP-EISAI INC-E7389-02557-CLI-JP

PATIENT
  Age: 70 Year
  Sex: Female
  Weight: 48 kg

DRUGS (14)
  1. HALAVEN [Suspect]
     Indication: BREAST CANCER RECURRENT
     Route: 041
     Dates: start: 20110808, end: 20110808
  2. HALAVEN [Suspect]
     Indication: METASTASES TO LYMPH NODES
  3. HALAVEN [Suspect]
     Indication: METASTASES TO LUNG
  4. HALAVEN [Suspect]
     Indication: METASTASES TO BRAIN
  5. PROGESTON [Concomitant]
     Indication: BREAST CANCER RECURRENT
     Route: 048
     Dates: start: 20110712
  6. AMLODIPINE [Concomitant]
     Route: 048
  7. PREGABALIN [Concomitant]
     Route: 048
  8. PANTOSIN [Concomitant]
     Route: 048
  9. MAGMITT [Concomitant]
     Route: 048
  10. CYMABLTA [Concomitant]
     Route: 048
  11. LECICARBON [Concomitant]
     Route: 048
  12. ETHYL ICOSAPENTATE [Concomitant]
     Indication: THROMBOSIS PROPHYLAXIS
     Route: 048
  13. LOXONIN [Concomitant]
     Route: 048
  14. PROTICASONE [Concomitant]
     Route: 048

REACTIONS (1)
  - Interstitial lung disease [Recovering/Resolving]
